FAERS Safety Report 7996507-0 (Version None)
Quarter: 2011Q4

REPORT INFORMATION
  Report Type: 
  Country: None (occurrence: None)
  Receive Date: 20111220
  Receipt Date: 20111212
  Transmission Date: 20120403
  Serious: Yes (Hospitalization)
  Sender: FDA-Public Use
  Company Number: PHHY2011IT107997

PATIENT
  Sex: Male

DRUGS (2)
  1. ENALAPRIL MALEATE [Suspect]
  2. ALLOPURINOL [Suspect]

REACTIONS (3)
  - AFFECT LABILITY [None]
  - LEUKOPENIA [None]
  - THROMBOCYTOPENIA [None]
